FAERS Safety Report 15160839 (Version 1)
Quarter: 2018Q3

REPORT INFORMATION
  Report Type: Spontaneous
  Country: US (occurrence: US)
  Receive Date: 20180718
  Receipt Date: 20180718
  Transmission Date: 20181010
  Serious: No
  Sender: FDA-Public Use
  Company Number: US-IMPAX LABORATORIES, INC-2018-IPXL-00729

PATIENT
  Age: 54 Year
  Sex: Female
  Weight: 58 kg

DRUGS (7)
  1. CITALOPRAM [Concomitant]
     Active Substance: CITALOPRAM HYDROBROMIDE
     Indication: ANXIETY
     Dosage: 40 MG, DAILY
     Route: 048
     Dates: start: 2017
  2. BAYER ASPIRIN [Concomitant]
     Active Substance: ASPIRIN
     Indication: ANTICOAGULANT THERAPY
     Dosage: 81 MG, DAILY
     Route: 048
     Dates: start: 2013
  3. GEMFIBROZIL. [Concomitant]
     Active Substance: GEMFIBROZIL
     Indication: BLOOD CHOLESTEROL
     Dosage: 600 MG TABLET, 2 /DAY
     Route: 048
     Dates: start: 2013
  4. ATORVASTATIN [Concomitant]
     Active Substance: ATORVASTATIN
     Indication: BLOOD TRIGLYCERIDES
     Dosage: 40 MG, 1 /DAY, (40 MG ONCE A DAY)
     Route: 048
  5. BUPROPION HYDROCHLORIDE EXTENDED?RELEASE [Suspect]
     Active Substance: BUPROPION HYDROCHLORIDE
     Indication: SMOKING CESSATION THERAPY
     Dosage: 150 MG, 1 /DAY
     Route: 048
     Dates: start: 201711, end: 201711
  6. BUPROPION HYDROCHLORIDE EXTENDED?RELEASE [Suspect]
     Active Substance: BUPROPION HYDROCHLORIDE
     Dosage: 300 MG; 2 TABLETS, 1 /DAY
     Route: 048
     Dates: start: 201711, end: 201711
  7. PANTOPRAZOLE SODIUM. [Concomitant]
     Active Substance: PANTOPRAZOLE SODIUM
     Indication: GASTROOESOPHAGEAL REFLUX DISEASE
     Dosage: 40 MG, DAILY
     Route: 048

REACTIONS (6)
  - Tremor [Recovered/Resolved]
  - Disturbance in attention [Recovered/Resolved]
  - Headache [Recovered/Resolved]
  - Nervousness [Recovered/Resolved]
  - Feeling jittery [Recovered/Resolved]
  - Insomnia [Recovered/Resolved]

NARRATIVE: CASE EVENT DATE: 201711
